FAERS Safety Report 5823178-1 (Version None)
Quarter: 2008Q3

REPORT INFORMATION
  Report Type: 
  Country: None (occurrence: None)
  Receive Date: 20080725
  Receipt Date: 20080717
  Transmission Date: 20090109
  Serious: Yes (Other)
  Sender: FDA-Public Use
  Company Number: PHBS2008KW05170

PATIENT
  Age: 43 Year

DRUGS (3)
  1. IMATINIB MESYLATE [Suspect]
     Indication: CHRONIC MYELOID LEUKAEMIA
     Dosage: 400 MG,DAY
     Dates: start: 20020701
  2. IMATINIB MESYLATE [Suspect]
     Dosage: 600 MG, DAY
     Dates: start: 20060401
  3. CHEMOTHERAPEUTICS NOS [Suspect]
     Dosage: UNK
     Dates: start: 20060901

REACTIONS (2)
  - ACUTE LYMPHOCYTIC LEUKAEMIA [None]
  - CYTOGENETIC ANALYSIS ABNORMAL [None]
